FAERS Safety Report 7793516-1 (Version None)
Quarter: 2011Q4

REPORT INFORMATION
  Report Type: 
  Country: None (occurrence: None)
  Receive Date: 20111003
  Receipt Date: 20101108
  Transmission Date: 20120403
  Serious: Yes (Other)
  Sender: FDA-Public Use
  Company Number: US-BAYER-201040808NA

PATIENT
  Age: 71 Year
  Sex: Female

DRUGS (2)
  1. CIPROFLOXACIN [Suspect]
     Indication: URINARY TRACT INFECTION
     Dosage: 500 MG, BID
     Route: 048
     Dates: start: 20101016, end: 20101022
  2. LOPRESSOR [Concomitant]
     Indication: PRODUCT USED FOR UNKNOWN INDICATION
     Dosage: 25 MG, UNK

REACTIONS (8)
  - JOINT CREPITATION [None]
  - PAIN IN EXTREMITY [None]
  - HEADACHE [None]
  - MUSCLE TWITCHING [None]
  - TENDONITIS [None]
  - MUSCLE SPASMS [None]
  - SYNOVIAL CYST [None]
  - CARTILAGE INJURY [None]
